FAERS Safety Report 6924472-3 (Version None)
Quarter: 2010Q3

REPORT INFORMATION
  Report Type: 
  Country: None (occurrence: None)
  Receive Date: 20100811
  Receipt Date: 20100804
  Transmission Date: 20110219
  Serious: Yes (Hospitalization)
  Sender: FDA-Public Use
  Company Number: CRC-10-126

PATIENT
  Age: 71 Year
  Sex: Female
  Weight: 81.6475 kg

DRUGS (7)
  1. METFORMIN HCL [Suspect]
     Indication: TYPE 2 DIABETES MELLITUS
     Dosage: 1000MG 2 IN 1 DAY, ORAL
     Route: 048
     Dates: start: 20090918, end: 20091203
  2. STUDY DRUG [Suspect]
     Indication: TYPE 2 DIABETES MELLITUS
     Dates: start: 20090918, end: 20091203
  3. ASPIRIN [Concomitant]
  4. PANTOPRAZOLE [Concomitant]
  5. ALEVE (CAPLET) [Concomitant]
  6. LISINOPRIL [Concomitant]
  7. TRAMADOL HCL [Concomitant]

REACTIONS (3)
  - DIVERTICULUM [None]
  - LARGE INTESTINE PERFORATION [None]
  - POSTOPERATIVE ILEUS [None]
